FAERS Safety Report 18886568 (Version 3)
Quarter: 2023Q2

REPORT INFORMATION
  Report Type: Spontaneous
  Country: US (occurrence: US)
  Receive Date: 20210212
  Receipt Date: 20230526
  Transmission Date: 20230721
  Serious: Yes (Other)
  Sender: FDA-Public Use
  Company Number: US-UCBSA-2021005370

PATIENT
  Sex: Female
  Weight: 95 kg

DRUGS (1)
  1. CIMZIA [Suspect]
     Active Substance: CERTOLIZUMAB PEGOL
     Indication: Psoriasis
     Dosage: 400 MILLIGRAM, EV 4 WEEKS
     Route: 058
     Dates: start: 20200716, end: 202012

REACTIONS (4)
  - COVID-19 [Unknown]
  - Arthralgia [Unknown]
  - Psoriasis [Unknown]
  - Drug ineffective [Unknown]
